FAERS Safety Report 18322591 (Version 1)
Quarter: 2020Q3

REPORT INFORMATION
  Report Type: Report from Study
  Country: BR (occurrence: BR)
  Receive Date: 20200929
  Receipt Date: 20200929
  Transmission Date: 20201103
  Serious: Yes (Hospitalization, Other)
  Sender: FDA-Public Use
  Company Number: NVSC2020BR261656

PATIENT
  Age: 50 Year
  Sex: Female

DRUGS (2)
  1. COSENTYX [Suspect]
     Active Substance: SECUKINUMAB
     Dosage: UNK UNK, UNKNOWN
     Route: 065
     Dates: start: 20200829
  2. COSENTYX [Suspect]
     Active Substance: SECUKINUMAB
     Indication: PSORIATIC ARTHROPATHY
     Dosage: UNK UNK, UNKNOWN
     Route: 065
     Dates: start: 20190903

REACTIONS (5)
  - Secretion discharge [Not Recovered/Not Resolved]
  - Nodule [Recovered/Resolved]
  - Immunodeficiency [Unknown]
  - Synovial cyst [Recovered/Resolved]
  - Arthritis infective [Not Recovered/Not Resolved]

NARRATIVE: CASE EVENT DATE: 20200818
